FAERS Safety Report 21311129 (Version 1)
Quarter: 2022Q3

REPORT INFORMATION
  Report Type: Spontaneous
  Country: US (occurrence: None)
  Receive Date: 20220909
  Receipt Date: 20220909
  Transmission Date: 20221027
  Serious: No
  Sender: FDA-Public Use
  Company Number: US-ARIS GLOBAL-202201-0093

PATIENT
  Age: 87 Year
  Sex: Male

DRUGS (12)
  1. OXERVATE [Suspect]
     Active Substance: CENEGERMIN-BKBJ
     Indication: Neurotrophic keratopathy
     Route: 047
     Dates: start: 20220112
  2. ROSUVASTATIN CALCIUM [Concomitant]
     Active Substance: ROSUVASTATIN CALCIUM
  3. REFRESH CLASSIC [Concomitant]
     Active Substance: POLYVINYL ALCOHOL\POVIDONE
  4. MELATONIN [Concomitant]
     Active Substance: MELATONIN
  5. ASPIRIN [Concomitant]
     Active Substance: ASPIRIN
  6. MULTIVITAMIN GUMMIES [Concomitant]
     Dosage: GUMMIES
  7. ACYCLOVIR [Concomitant]
     Active Substance: ACYCLOVIR
  8. CRESTOR [Concomitant]
     Active Substance: ROSUVASTATIN CALCIUM
  9. CELEBREX [Concomitant]
     Active Substance: CELECOXIB
  10. BENAZEPRIL-HYDROCHLOROTHIAZIDE [Concomitant]
  11. ALLOPURINOL [Concomitant]
     Active Substance: ALLOPURINOL
  12. METFORMIN HYDROCHLORIDE [Concomitant]
     Active Substance: METFORMIN HYDROCHLORIDE
     Dosage: GASTRIC

REACTIONS (2)
  - Foreign body sensation in eyes [Recovered/Resolved]
  - Product dose omission issue [Unknown]

NARRATIVE: CASE EVENT DATE: 20220113
